FAERS Safety Report 11865615 (Version 2)
Quarter: 2016Q1

REPORT INFORMATION
  Report Type: Spontaneous
  Country: US (occurrence: US)
  Receive Date: 20151223
  Receipt Date: 20160128
  Transmission Date: 20160526
  Serious: No
  Sender: FDA-Public Use
  Company Number: US-GLAXOSMITHKLINE-US2015178384

PATIENT
  Age: 22 Year
  Sex: Female

DRUGS (3)
  1. ALBUTEROL NEBULIZER [Concomitant]
     Active Substance: ALBUTEROL
  2. PREDNISONE. [Concomitant]
     Active Substance: PREDNISONE
  3. VENTOLIN HFA [Suspect]
     Active Substance: ALBUTEROL SULFATE
     Indication: ASTHMA
     Dosage: 2 PUFF(S), QID
     Route: 055
     Dates: start: 20151211

REACTIONS (3)
  - Drug ineffective [Recovered/Resolved]
  - Condition aggravated [Recovered/Resolved]
  - Product quality issue [Unknown]

NARRATIVE: CASE EVENT DATE: 20151213
